FAERS Safety Report 16314775 (Version 1)
Quarter: 2019Q2

REPORT INFORMATION
  Report Type: Report from Study
  Country: None (occurrence: US)
  Receive Date: 20190515
  Receipt Date: 20190515
  Transmission Date: 20190711
  Serious: Yes (Hospitalization, Other)
  Sender: FDA-Public Use
  Company Number: US-ABBVIE-18K-163-2564211-00

PATIENT
  Age: 20 Year
  Sex: Male
  Weight: 116 kg

DRUGS (6)
  1. ONDANSETRON [Concomitant]
     Active Substance: ONDANSETRON
     Indication: PRODUCT USED FOR UNKNOWN INDICATION
  2. HUMIRA [Suspect]
     Active Substance: ADALIMUMAB
     Indication: CROHN^S DISEASE
     Route: 058
     Dates: start: 201803, end: 201811
  3. HUMIRA [Suspect]
     Active Substance: ADALIMUMAB
     Route: 058
     Dates: start: 201811
  4. METHOTREXATE. [Concomitant]
     Active Substance: METHOTREXATE
     Indication: CROHN^S DISEASE
  5. FOLIC ACID. [Concomitant]
     Active Substance: FOLIC ACID
     Indication: PRODUCT USED FOR UNKNOWN INDICATION
  6. OMEPRAZOLE. [Concomitant]
     Active Substance: OMEPRAZOLE
     Indication: PRODUCT USED FOR UNKNOWN INDICATION

REACTIONS (22)
  - Haematochezia [Unknown]
  - Culture stool positive [Unknown]
  - Hypokalaemia [Unknown]
  - Wound [Unknown]
  - Pyrexia [Unknown]
  - Tachycardia [Unknown]
  - Drug level decreased [Unknown]
  - Sepsis [Unknown]
  - Abscess [Unknown]
  - Pulmonary mass [Unknown]
  - Crohn^s disease [Unknown]
  - Large intestine infection [Unknown]
  - Pleuritic pain [Unknown]
  - Infection [Unknown]
  - Abdominal pain [Unknown]
  - Candida infection [Unknown]
  - Dyspnoea exertional [Unknown]
  - Rhinovirus infection [Unknown]
  - Hypomagnesaemia [Unknown]
  - Intra-abdominal fluid collection [Unknown]
  - Bacterial test positive [Unknown]
  - Vasculitis [Unknown]

NARRATIVE: CASE EVENT DATE: 2018
